FAERS Safety Report 10246842 (Version 1)
Quarter: 2014Q2

REPORT INFORMATION
  Report Type: Spontaneous
  Country: GB (occurrence: GB)
  Receive Date: 20140619
  Receipt Date: 20140619
  Transmission Date: 20141212
  Serious: Yes (Other)
  Sender: FDA-Public Use
  Company Number: GB-ACTAVIS-2014-12785

PATIENT
  Age: 49 Year
  Sex: Female
  Weight: 92 kg

DRUGS (1)
  1. CLOPIDOGREL (UNKNOWN) [Suspect]
     Indication: CEREBROVASCULAR ACCIDENT
     Dosage: 1 DF, DAILY
     Route: 048

REACTIONS (2)
  - Arthritis [Not Recovered/Not Resolved]
  - Arthralgia [Not Recovered/Not Resolved]
